FAERS Safety Report 15783745 (Version 1)
Quarter: 2019Q1

REPORT INFORMATION
  Report Type: Spontaneous
  Country: US (occurrence: US)
  Receive Date: 20190102
  Receipt Date: 20190102
  Transmission Date: 20190417
  Serious: Yes (Other)
  Sender: FDA-Public Use
  Company Number: US-JAZZ-2018-US-018798

PATIENT
  Age: 61 Year
  Sex: Male

DRUGS (4)
  1. PRIALT [Suspect]
     Active Substance: ZICONOTIDE ACETATE
     Indication: POST LAMINECTOMY SYNDROME
  2. SUFENTA [Suspect]
     Active Substance: SUFENTANIL CITRATE
     Indication: POST LAMINECTOMY SYNDROME
  3. PRIALT [Suspect]
     Active Substance: ZICONOTIDE ACETATE
     Indication: PAIN
     Dosage: UNK ?G, QH
     Route: 037
     Dates: start: 201803
  4. SUFENTA [Suspect]
     Active Substance: SUFENTANIL CITRATE
     Indication: PAIN
     Dosage: UNK ?G, QH
     Route: 037

REACTIONS (1)
  - Acute kidney injury [Unknown]

NARRATIVE: CASE EVENT DATE: 201803
